FAERS Safety Report 7906736-X (Version None)
Quarter: 2011Q4

REPORT INFORMATION
  Report Type: 
  Country: None (occurrence: None)
  Receive Date: 20111110
  Receipt Date: 20111031
  Transmission Date: 20120403
  Serious: Yes (Other)
  Sender: FDA-Public Use
  Company Number: FR-SANOFI-AVENTIS-2011SA071991

PATIENT

DRUGS (4)
  1. PACLITAXEL [Suspect]
     Indication: OVARIAN CANCER
     Route: 065
  2. BEVACIZUMAB [Suspect]
     Indication: OVARIAN CANCER
     Route: 065
  3. VINORELBINE TARTRATE [Suspect]
     Indication: OVARIAN CANCER
     Route: 065
  4. DOCETAXEL [Suspect]
     Indication: OVARIAN CANCER
     Route: 065

REACTIONS (2)
  - FISTULA [None]
  - GASTROINTESTINAL PERFORATION [None]
